FAERS Safety Report 15108303 (Version 2)
Quarter: 2018Q3

REPORT INFORMATION
  Report Type: Spontaneous
  Country: PT (occurrence: PT)
  Receive Date: 20180705
  Receipt Date: 20180829
  Transmission Date: 20181010
  Serious: Yes (Other)
  Sender: FDA-Public Use
  Company Number: PT-TEVA-2018-PT-917805

PATIENT
  Age: 24 Year
  Sex: Male

DRUGS (6)
  1. OLANZAPINE. [Concomitant]
     Active Substance: OLANZAPINE
     Indication: DELUSIONAL DISORDER, PERSECUTORY TYPE
     Route: 065
  2. HALOPERIDOL. [Concomitant]
     Active Substance: HALOPERIDOL
     Indication: HALLUCINATION, AUDITORY
  3. VALPROIC ACID. [Suspect]
     Active Substance: VALPROIC ACID
     Indication: HALLUCINATION, AUDITORY
  4. VALPROIC ACID. [Suspect]
     Active Substance: VALPROIC ACID
     Indication: DELUSIONAL DISORDER, PERSECUTORY TYPE
     Route: 065
  5. HALOPERIDOL. [Concomitant]
     Active Substance: HALOPERIDOL
     Indication: DELUSIONAL DISORDER, PERSECUTORY TYPE
     Route: 065
  6. OLANZAPINE. [Concomitant]
     Active Substance: OLANZAPINE
     Indication: HALLUCINATION, AUDITORY

REACTIONS (9)
  - Haemorrhage [Recovered/Resolved]
  - Necrosis [Recovered/Resolved]
  - Pain [Recovered/Resolved]
  - Mouth haemorrhage [Recovered/Resolved]
  - Myalgia [Recovered/Resolved]
  - Oral mucosal erythema [Recovered/Resolved]
  - Lip ulceration [Recovered/Resolved]
  - Gingival ulceration [Recovered/Resolved]
  - Multiple injuries [Recovered/Resolved]
